FAERS Safety Report 7560789-X (Version None)
Quarter: 2011Q2

REPORT INFORMATION
  Report Type: 
  Country: None (occurrence: None)
  Receive Date: 20110621
  Receipt Date: 20100810
  Transmission Date: 20111010
  Serious: No
  Sender: FDA-Public Use
  Company Number: US-ASTRAZENECA-2010SE37507

PATIENT
  Age: 75 Year
  Sex: Female

DRUGS (6)
  1. LEXAPRO [Concomitant]
  2. SYNTHROID [Concomitant]
  3. PRE-CANCER TOPICAL MEDICATION [Concomitant]
  4. ZETIA [Concomitant]
  5. VITAMIN TAB [Concomitant]
  6. ATACAND [Suspect]
     Indication: HYPERTENSION
     Route: 048
     Dates: start: 20040101

REACTIONS (5)
  - ARTHRALGIA [None]
  - PYREXIA [None]
  - MUSCULAR WEAKNESS [None]
  - HYPONATRAEMIA [None]
  - BLOOD CREATININE INCREASED [None]
